FAERS Safety Report 23639393 (Version 1)
Quarter: 2024Q1

REPORT INFORMATION
  Report Type: Spontaneous
  Country: SE (occurrence: SE)
  Receive Date: 20240316
  Receipt Date: 20240316
  Transmission Date: 20240410
  Serious: Yes (Other)
  Sender: FDA-Public Use
  Company Number: SE-TEVA-VS-3169735

PATIENT
  Age: 28 Year
  Sex: Female

DRUGS (1)
  1. OLANZAPINE [Suspect]
     Active Substance: OLANZAPINE
     Dosage: TREATMENT ONGOING
     Route: 065

REACTIONS (4)
  - Hyperprolactinaemia [Unknown]
  - Hair growth abnormal [Unknown]
  - Alopecia [Unknown]
  - Breast cyst [Unknown]

NARRATIVE: CASE EVENT DATE: 20200901
